FAERS Safety Report 10103552 (Version 1)
Quarter: 2014Q2

REPORT INFORMATION
  Report Type: Spontaneous
  Country: US (occurrence: US)
  Receive Date: 20140424
  Receipt Date: 20140424
  Transmission Date: 20141212
  Serious: Yes (Other)
  Sender: FDA-Public Use
  Company Number: US-CUBIST PHARMACEUTICAL, INC.-2014CBST000583

PATIENT
  Sex: 0

DRUGS (5)
  1. CUBICIN [Suspect]
     Indication: ENTEROCOCCAL INFECTION
     Dosage: 8 MG/KG, UNK
     Route: 065
  2. CUBICIN [Suspect]
     Indication: ENTEROCOCCAL BACTERAEMIA
  3. CUBICIN [Suspect]
     Indication: OFF LABEL USE
  4. GENTAMYCIN                         /00047101/ [Concomitant]
     Indication: ENTEROCOCCAL INFECTION
     Dosage: UNK UNK UNK
     Route: 065
  5. GENTAMYCIN                         /00047101/ [Concomitant]
     Indication: ENTEROCOCCAL BACTERAEMIA

REACTIONS (2)
  - Enterococcal bacteraemia [Recovering/Resolving]
  - Antimicrobial susceptibility test resistant [Unknown]
